FAERS Safety Report 19432696 (Version 2)
Quarter: 2022Q1

REPORT INFORMATION
  Report Type: Spontaneous
  Country: US (occurrence: US)
  Receive Date: 20210618
  Receipt Date: 20220317
  Transmission Date: 20220424
  Serious: Yes (Other)
  Sender: FDA-Public Use
  Company Number: US-GILEAD-2021-0536635

PATIENT
  Age: 64 Year
  Sex: Female
  Weight: 58.06 kg

DRUGS (29)
  1. ATRIPLA [Suspect]
     Active Substance: EFAVIRENZ\EMTRICITABINE\TENOFOVIR DISOPROXIL FUMARATE
     Indication: HIV infection
     Dosage: UNK
     Route: 048
     Dates: start: 2008
  2. ATRIPLA [Suspect]
     Active Substance: EFAVIRENZ\EMTRICITABINE\TENOFOVIR DISOPROXIL FUMARATE
     Dosage: UNK
     Route: 048
     Dates: start: 2006, end: 201606
  3. GENVOYA [Concomitant]
     Active Substance: COBICISTAT\ELVITEGRAVIR\EMTRICITABINE\TENOFOVIR ALAFENAMIDE FUMARATE
  4. BIKTARVY [Concomitant]
     Active Substance: BICTEGRAVIR SODIUM\EMTRICITABINE\TENOFOVIR ALAFENAMIDE FUMARATE
  5. CIMDUO [Concomitant]
     Active Substance: LAMIVUDINE\TENOFOVIR DISOPROXIL FUMARATE
  6. AMLODIPINE BESYLATE [Concomitant]
     Active Substance: AMLODIPINE BESYLATE
  7. AMMONIUM LACTATE [Concomitant]
     Active Substance: AMMONIUM LACTATE
  8. ATROPINE [Concomitant]
     Active Substance: ATROPINE
  9. AZOPT [Concomitant]
     Active Substance: BRINZOLAMIDE
  10. BENADRYL [Concomitant]
     Active Substance: DIPHENHYDRAMINE HYDROCHLORIDE
  11. BENZONATATE [Concomitant]
     Active Substance: BENZONATATE
  12. BREO ELLIPTA [Concomitant]
     Active Substance: FLUTICASONE FUROATE\VILANTEROL TRIFENATATE
  13. BRIMONIDINE [Concomitant]
     Active Substance: BRIMONIDINE TARTRATE
  14. CHANTIX [Concomitant]
     Active Substance: VARENICLINE TARTRATE
  15. PLAVIX [Concomitant]
     Active Substance: CLOPIDOGREL BISULFATE
  16. COMBIGAN [Concomitant]
     Active Substance: BRIMONIDINE TARTRATE\TIMOLOL MALEATE
  17. COSOPT [Concomitant]
     Active Substance: DORZOLAMIDE HYDROCHLORIDE\TIMOLOL MALEATE
  18. FLUTICASONE [Concomitant]
     Active Substance: FLUTICASONE
  19. GABAPENTIN [Concomitant]
     Active Substance: GABAPENTIN
  20. JULUCA [Concomitant]
     Active Substance: DOLUTEGRAVIR SODIUM\RILPIVIRINE HYDROCHLORIDE
  21. LACTULOSE [Concomitant]
     Active Substance: LACTULOSE
  22. LATANOPROST [Concomitant]
     Active Substance: LATANOPROST
  23. MEGESTROL [Concomitant]
     Active Substance: MEGESTROL
  24. NICOTINE TRANSDERMAL SYSTEM [Concomitant]
     Active Substance: NICOTINE
  25. THERA-M [Concomitant]
  26. TRAZODONE [Concomitant]
     Active Substance: TRAZODONE HYDROCHLORIDE
  27. VENTOLIN HFA [Concomitant]
     Active Substance: ALBUTEROL SULFATE
  28. ZOLPIDEM [Concomitant]
     Active Substance: ZOLPIDEM TARTRATE
  29. COMBIVIR [Concomitant]
     Active Substance: LAMIVUDINE\ZIDOVUDINE

REACTIONS (9)
  - Osteoporosis [Not Recovered/Not Resolved]
  - Renal injury [Unknown]
  - Bone density decreased [Unknown]
  - Ankle fracture [Unknown]
  - Pain [Not Recovered/Not Resolved]
  - Emotional distress [Not Recovered/Not Resolved]
  - Anxiety [Not Recovered/Not Resolved]
  - Anhedonia [Not Recovered/Not Resolved]
  - Depression [Unknown]

NARRATIVE: CASE EVENT DATE: 20190901
